FAERS Safety Report 6979402-5 (Version None)
Quarter: 2010Q3

REPORT INFORMATION
  Report Type: 
  Country: None (occurrence: None)
  Receive Date: 20100910
  Receipt Date: 20100910
  Transmission Date: 20110219
  Serious: Yes (Other)
  Sender: FDA-Public Use
  Company Number: None

PATIENT
  Age: 64 Year
  Sex: Female
  Weight: 71.6683 kg

DRUGS (4)
  1. NIFEDIPINE [Suspect]
     Indication: BLOOD PRESSURE DECREASED
     Dosage: 60 MG ONE TAB DAILY
     Dates: start: 20100816
  2. NIFEDIPINE [Suspect]
     Indication: BLOOD PRESSURE DECREASED
     Dosage: 60 MG ONE TAB DAILY
     Dates: start: 20100817
  3. NIFEDIPINE [Suspect]
     Indication: BLOOD PRESSURE DECREASED
     Dosage: 60 MG ONE TAB DAILY
     Dates: start: 20100820
  4. NIFEDIPINE [Suspect]
     Indication: BLOOD PRESSURE DECREASED
     Dosage: 60 MG ONE TAB DAILY
     Dates: start: 20100821

REACTIONS (1)
  - MICTURITION DISORDER [None]
